FAERS Safety Report 22028604 (Version 1)
Quarter: 2023Q1

REPORT INFORMATION
  Report Type: Spontaneous
  Country: CN (occurrence: CN)
  Receive Date: 20230223
  Receipt Date: 20230223
  Transmission Date: 20230418
  Serious: Yes (Life-Threatening, Other)
  Sender: FDA-Public Use
  Company Number: CN-PFIZER INC-PV202300033217

PATIENT
  Age: 45 Year
  Sex: Female

DRUGS (2)
  1. METHYLPREDNISOLONE [Suspect]
     Active Substance: METHYLPREDNISOLONE
     Indication: Lichen myxoedematosus
     Dosage: 16 MG
     Route: 048
  2. THALIDOMIDE [Suspect]
     Active Substance: THALIDOMIDE
     Indication: Lichen myxoedematosus
     Dosage: 50 MG, PER DAY FOR 6 MONTHS

REACTIONS (1)
  - Condition aggravated [Recovering/Resolving]
